FAERS Safety Report 8032415-7 (Version None)
Quarter: 2011Q4

REPORT INFORMATION
  Report Type: 
  Country: None (occurrence: None)
  Receive Date: 20111202
  Receipt Date: 20111102
  Transmission Date: 20120403
  Serious: No
  Sender: FDA-Public Use
  Company Number: PHHY2011US61100

PATIENT
  Age: 53 Year
  Sex: Female
  Weight: 76.2 kg

DRUGS (4)
  1. FANAPT [Suspect]
     Indication: SCHIZOPHRENIA
     Dosage: 05 MG, BID, ORAL ; 05 MG, QD, ORAL ; 8 MG, BID, ORAL
     Route: 048
     Dates: start: 20110620, end: 20110705
  2. FANAPT [Suspect]
     Indication: SCHIZOPHRENIA
     Dosage: 05 MG, BID, ORAL ; 05 MG, QD, ORAL ; 8 MG, BID, ORAL
     Route: 048
     Dates: start: 20110703
  3. LASIX [Concomitant]
  4. LISINOPRIL [Concomitant]

REACTIONS (2)
  - BLOOD PRESSURE DECREASED [None]
  - DIZZINESS [None]
